FAERS Safety Report 8166106-9 (Version None)
Quarter: 2012Q1

REPORT INFORMATION
  Report Type: 
  Country: None (occurrence: None)
  Receive Date: 20120227
  Receipt Date: 20110321
  Transmission Date: 20120608
  Serious: Yes (Other)
  Sender: FDA-Public Use
  Company Number: US-MYLANLABS-2011S1005976

PATIENT
  Sex: Male

DRUGS (2)
  1. ACCUTANE [Suspect]
     Indication: ACNE
     Dates: start: 19990301, end: 20010101
  2. AMNESTEEM [Suspect]
     Indication: ACNE
     Dates: start: 20050501, end: 20050601

REACTIONS (1)
  - INFLAMMATORY BOWEL DISEASE [None]
